FAERS Safety Report 8588546-6 (Version None)
Quarter: 2012Q3

REPORT INFORMATION
  Report Type: 
  Country: None (occurrence: None)
  Receive Date: 20120813
  Receipt Date: 20120810
  Transmission Date: 20120928
  Serious: Yes (Other)
  Sender: FDA-Public Use
  Company Number: US-PFIZER INC-2012195988

PATIENT
  Age: 57 Year
  Sex: Female
  Weight: 104.76 kg

DRUGS (6)
  1. CHANTIX [Suspect]
     Dosage: 0.5 MG, 1X/DAY
     Route: 048
     Dates: start: 20120806
  2. CHANTIX [Suspect]
     Indication: SMOKING CESSATION THERAPY
     Dosage: 0.5 MG, 1X/DAY
     Route: 048
     Dates: start: 20070101
  3. METFORMIN [Concomitant]
     Indication: DIABETES MELLITUS
     Dosage: UNK
  4. CHANTIX [Suspect]
     Dosage: UNK
     Route: 048
  5. INSULIN [Concomitant]
     Indication: DIABETES MELLITUS
     Dosage: UNK
  6. INTERFERON [Suspect]
     Dosage: UNK

REACTIONS (13)
  - MENTAL DISORDER [None]
  - MALAISE [None]
  - VOMITING [None]
  - POLLAKIURIA [None]
  - NAUSEA [None]
  - DEPRESSION [None]
  - ABNORMAL BEHAVIOUR [None]
  - HEPATITIS C [None]
  - STRESS [None]
  - DIARRHOEA [None]
  - FEELING ABNORMAL [None]
  - WEIGHT DECREASED [None]
  - WEIGHT INCREASED [None]
